FAERS Safety Report 14965040 (Version 1)
Quarter: 2018Q2

REPORT INFORMATION
  Report Type: Spontaneous
  Country: FR (occurrence: FR)
  Receive Date: 20180601
  Receipt Date: 20180601
  Transmission Date: 20180711
  Serious: Yes (Life-Threatening)
  Sender: FDA-Public Use
  Company Number: FR-MYLANLABS-2018M1036246

PATIENT
  Sex: Female

DRUGS (1)
  1. CANDESARTAN HYDROCHLOROTHIAZIDE MYLAN PHARMA 8 MG/12.5 MG, COMPRIM? [Suspect]
     Active Substance: CANDESARTAN CILEXETIL\HYDROCHLOROTHIAZIDE
     Indication: PRODUCT USED FOR UNKNOWN INDICATION
     Dosage: UNK

REACTIONS (12)
  - Vomiting [Unknown]
  - Drug intolerance [Unknown]
  - Hypersensitivity [Unknown]
  - Headache [Unknown]
  - Blood pressure abnormal [None]
  - Crying [None]
  - Apparent death [Unknown]
  - Product availability issue [None]
  - Anxiety [None]
  - Nervousness [None]
  - Product substitution issue [None]
  - Drug dose omission [None]
